FAERS Safety Report 4380931-1 (Version None)
Quarter: 2004Q2

REPORT INFORMATION
  Report Type: 
  Country: None (occurrence: None)
  Receive Date: 20040614
  Receipt Date: 20040610
  Transmission Date: 20050107
  Serious: Yes (Hospitalization, Other)
  Sender: FDA-Public Use
  Company Number: USA-2004-0014014

PATIENT
  Age: 64 Year
  Sex: Female

DRUGS (4)
  1. SPECTRACEF [Suspect]
     Indication: INFECTED CYST
     Dosage: 200 MG, BID, ORAL
     Route: 048
     Dates: start: 20040311, end: 20040315
  2. NORVASC [Concomitant]
  3. HYDROCHLOROTHIAZIDE [Concomitant]
  4. ZOLOFT [Concomitant]

REACTIONS (6)
  - CELLULITIS STAPHYLOCOCCAL [None]
  - CONDITION AGGRAVATED [None]
  - CULTURE WOUND POSITIVE [None]
  - DERMAL CYST [None]
  - DRUG INEFFECTIVE [None]
  - STAPHYLOCOCCAL ABSCESS [None]
